FAERS Safety Report 21411501 (Version 1)
Quarter: 2022Q4

REPORT INFORMATION
  Report Type: Spontaneous
  Country: US (occurrence: US)
  Receive Date: 20221005
  Receipt Date: 20221005
  Transmission Date: 20230113
  Serious: Yes (Hospitalization, Other)
  Sender: FDA-Public Use
  Company Number: US-AMGEN-USASP2022168710

PATIENT
  Sex: Male

DRUGS (1)
  1. BEVACIZUMAB [Suspect]
     Active Substance: BEVACIZUMAB
     Indication: Meningioma
     Dosage: 7.5 MILLIGRAM PER KILOGRAM, Q3WK
     Route: 065

REACTIONS (4)
  - Meningioma [Unknown]
  - Epistaxis [Unknown]
  - Treatment failure [Unknown]
  - Off label use [Unknown]
